FAERS Safety Report 20621211 (Version 1)
Quarter: 2022Q1

REPORT INFORMATION
  Report Type: Report from Study
  Country: DE (occurrence: None)
  Receive Date: 20220322
  Receipt Date: 20220322
  Transmission Date: 20220424
  Serious: Yes (Hospitalization)
  Sender: FDA-Public Use
  Company Number: DE-ROCHE-3049541

PATIENT
  Age: 60 Year
  Sex: Female
  Weight: 52 kg

DRUGS (16)
  1. ATEZOLIZUMAB [Suspect]
     Active Substance: ATEZOLIZUMAB
     Indication: Triple negative breast cancer
     Dosage: LAST DOSE PRIOR TO SAE WAS ON 02/FEB/2022
     Route: 042
     Dates: start: 20211109
  2. PACLITAXEL [Suspect]
     Active Substance: PACLITAXEL
     Indication: Triple negative breast cancer
     Dosage: LAST DOSE PRIOR TO SAE WAS ON 26/JAN/2022
     Route: 042
     Dates: start: 20211109
  3. CARBOPLATIN [Suspect]
     Active Substance: CARBOPLATIN
     Indication: Triple negative breast cancer
     Dosage: LAST DOSE PRIOR TO SAE WAS ON 26/JAN/2022
     Route: 042
     Dates: start: 20211109
  4. EPIRUBICIN [Suspect]
     Active Substance: EPIRUBICIN
     Indication: Triple negative breast cancer
     Dosage: LAST DOSE PRIOR TO SAE WAS ON 02/FEB/2022
     Route: 042
     Dates: start: 20220202
  5. CYCLOPHOSPHAMIDE [Suspect]
     Active Substance: CYCLOPHOSPHAMIDE
     Indication: Triple negative breast cancer
     Dosage: LAST DOSE PRIOR TO SAE ON 02/FEB/2022
     Route: 042
     Dates: start: 20220202
  6. GRANISETRON [Concomitant]
     Active Substance: GRANISETRON
     Dates: start: 20211109, end: 20220126
  7. DEXAMETHASONE [Concomitant]
     Active Substance: DEXAMETHASONE
     Dates: start: 20211109, end: 20220126
  8. DEXAMETHASONE [Concomitant]
     Active Substance: DEXAMETHASONE
     Dates: start: 20220202
  9. CLEMASTINE [Concomitant]
     Active Substance: CLEMASTINE
     Dates: start: 20211109, end: 20220126
  10. NEUPOGEN [Concomitant]
     Active Substance: FILGRASTIM
     Dosage: 30 MIO.E. ONCE DAILY
     Dates: start: 20211202, end: 20211203
  11. NEUPOGEN [Concomitant]
     Active Substance: FILGRASTIM
     Dosage: 30 MIO.E. ONCE DAILY
     Dates: start: 20211217, end: 20211218
  12. COMIRNATY [Concomitant]
     Active Substance: TOZINAMERAN
     Dates: start: 20210512, end: 20210512
  13. COMIRNATY [Concomitant]
     Active Substance: TOZINAMERAN
     Dates: start: 20210610, end: 20210610
  14. COMIRNATY [Concomitant]
     Active Substance: TOZINAMERAN
     Dates: start: 20211112, end: 20211112
  15. AKYNZEO [Concomitant]
     Active Substance: NETUPITANT\PALONOSETRON HYDROCHLORIDE
     Dates: start: 20220202
  16. MESNA [Concomitant]
     Active Substance: MESNA
     Dates: start: 20220202

REACTIONS (1)
  - Febrile neutropenia [Recovered/Resolved]

NARRATIVE: CASE EVENT DATE: 20220210
